FAERS Safety Report 24691294 (Version 2)
Quarter: 2024Q4

REPORT INFORMATION
  Report Type: Spontaneous
  Country: ES (occurrence: ES)
  Receive Date: 20241203
  Receipt Date: 20241220
  Transmission Date: 20250115
  Serious: Yes (Hospitalization, Other)
  Sender: SANDOZ
  Company Number: ES-HIKMA PHARMACEUTICALS USA INC.-ES-H14001-24-10834

PATIENT
  Age: 63 Year
  Sex: Female
  Weight: 78.2 kg

DRUGS (22)
  1. CARBOPLATIN [Suspect]
     Active Substance: CARBOPLATIN
     Indication: Non-small cell lung cancer
     Dosage: 480 MILLIGRAM, 3W
     Route: 042
     Dates: start: 20241024, end: 20241024
  2. CARBOPLATIN [Suspect]
     Active Substance: CARBOPLATIN
     Dosage: 480 MILLIGRAM, 3W (XMAB20717)
     Route: 042
     Dates: start: 20241115
  3. PEMETREXED [Suspect]
     Active Substance: PEMETREXED
     Indication: Non-small cell lung cancer
     Dosage: 955 MILLIGRAM, 3W
     Route: 042
     Dates: start: 20241024, end: 20241024
  4. PEMETREXED [Suspect]
     Active Substance: PEMETREXED
     Dosage: 500 MILLIGRAM PER CUBIC METRE, 3W
     Route: 042
     Dates: start: 20241115, end: 20241115
  5. VUDALIMAB [Suspect]
     Active Substance: VUDALIMAB
     Dosage: 750 MILLIGRAM, 3W (XMAB20717)
     Route: 042
     Dates: start: 20241115, end: 20241115
  6. VUDALIMAB [Suspect]
     Active Substance: VUDALIMAB
     Indication: Non-small cell lung cancer
     Dosage: 750 MILLIGRAM, 3W, (XMAB20717)
     Route: 042
     Dates: start: 20241024, end: 20241024
  7. DENOSUMAB [Concomitant]
     Active Substance: DENOSUMAB
     Indication: Product used for unknown indication
     Dosage: UNKNOWN
     Route: 065
     Dates: start: 20241009
  8. FENTANYL CITRATE [Concomitant]
     Active Substance: FENTANYL CITRATE
     Indication: Product used for unknown indication
     Dosage: UNKNOWN
     Route: 065
     Dates: start: 20241017
  9. ENALAPRIL [Concomitant]
     Active Substance: ENALAPRIL
     Indication: Product used for unknown indication
     Dosage: UNKNOWN
     Route: 065
  10. FENTANYL [Concomitant]
     Active Substance: FENTANYL
     Indication: Product used for unknown indication
     Dosage: UNKNOWN
     Route: 065
     Dates: start: 20241008
  11. FOLI DOCE [Concomitant]
     Indication: Product used for unknown indication
     Dosage: UNK
     Route: 065
  12. DEXAMETHASONE [Concomitant]
     Active Substance: DEXAMETHASONE
     Indication: Product used for unknown indication
     Dosage: UNKNOWN
     Route: 065
     Dates: start: 20241024
  13. IRON [Concomitant]
     Active Substance: IRON
     Indication: Product used for unknown indication
     Dosage: UNKNOWN
     Route: 065
     Dates: start: 20241009, end: 20241009
  14. LYRICA [Concomitant]
     Active Substance: PREGABALIN
     Indication: Product used for unknown indication
     Dosage: UNK
     Route: 065
  15. METOCLOPRAMIDE HYDROCHLORIDE [Concomitant]
     Active Substance: METOCLOPRAMIDE HYDROCHLORIDE
     Indication: Product used for unknown indication
     Dosage: UNKNOWN
     Route: 065
     Dates: start: 20241024
  16. MYCOSTATIN [Concomitant]
     Active Substance: NYSTATIN
     Indication: Product used for unknown indication
     Dosage: UNKNOWN
     Route: 065
  17. Nolotil [Concomitant]
     Indication: Product used for unknown indication
     Dosage: UNKNOWN
     Route: 065
     Dates: start: 20240708
  18. CYANOCOBALAMIN [Concomitant]
     Active Substance: CYANOCOBALAMIN
     Indication: Product used for unknown indication
     Dosage: UNKNOWN
     Route: 065
     Dates: start: 20241011
  19. LORAZEPAM [Concomitant]
     Active Substance: LORAZEPAM
     Indication: Product used for unknown indication
     Dosage: UNKNOWN
     Route: 065
  20. PREGABALIN [Concomitant]
     Active Substance: PREGABALIN
     Indication: Product used for unknown indication
     Dosage: UNKNOWN
     Route: 065
     Dates: start: 20241024
  21. MORPHINE [Concomitant]
     Active Substance: MORPHINE
     Indication: Product used for unknown indication
     Dosage: UNKNOWN
     Route: 065
  22. SIMVASTATIN [Concomitant]
     Active Substance: SIMVASTATIN
     Indication: Product used for unknown indication
     Dosage: UNKNOWN
     Route: 065
     Dates: start: 2023

REACTIONS (8)
  - Urinary tract infection [Not Recovered/Not Resolved]
  - Flank pain [Unknown]
  - Abdominal pain lower [Unknown]
  - Chromaturia [Unknown]
  - C-reactive protein increased [Unknown]
  - Large intestine infection [Recovered/Resolved]
  - Vomiting [Recovered/Resolved]
  - Dyspepsia [Recovered/Resolved]

NARRATIVE: CASE EVENT DATE: 20241027
